FAERS Safety Report 14393772 (Version 1)
Quarter: 2018Q1

REPORT INFORMATION
  Report Type: Spontaneous
  Country: US (occurrence: US)
  Receive Date: 20180113
  Receipt Date: 20180113
  Transmission Date: 20180509
  Serious: No
  Sender: FDA-Public Use
  Company Number: None

PATIENT
  Age: 58 Year
  Sex: Female

DRUGS (1)
  1. KISQALI [Suspect]
     Active Substance: RIBOCICLIB
     Indication: BREAST CANCER FEMALE
     Route: 048
     Dates: start: 20171212

REACTIONS (5)
  - Nausea [None]
  - Vomiting [None]
  - Constipation [None]
  - Loss of consciousness [None]
  - Headache [None]

NARRATIVE: CASE EVENT DATE: 20171229
